FAERS Safety Report 5337739-X (Version None)
Quarter: 2007Q2

REPORT INFORMATION
  Report Type: 
  Country: None (occurrence: None)
  Receive Date: 20070308
  Receipt Date: 20061204
  Transmission Date: 20071010
  Serious: No
  Sender: FDA-Public Use
  Company Number: 2006-BP-14262PF

PATIENT
  Age: 46 Year
  Sex: Female
  Weight: 56.7 kg

DRUGS (14)
  1. SPIRIVA [Suspect]
     Dosage: 18 MCG, ONCE DAILY, IH
     Route: 025
     Dates: start: 20061101
  2. CHANTIX [Suspect]
     Indication: SMOKING CESSATION THERAPY
     Dosage: 0.5 MG (0.5 MG, 1 IN 1 D)
     Dates: start: 20060101, end: 20060101
  3. DOXEPIN HCL [Suspect]
     Dosage: 25 MG (25 MG, QD AT NIGHT)
  4. ZELNORM [Concomitant]
  5. NASAREL (FLUNISOLIDE) [Concomitant]
  6. ATENOLOL [Concomitant]
  7. CLONAZEPAM [Concomitant]
  8. ESTROPIPATE [Concomitant]
  9. XOPENEX HFA (LEVOSALBUTAMOL) [Concomitant]
  10. COMBIVENT (COMBIVENT /01261001/) [Concomitant]
  11. ACIDOPHILUS (LACTOBACILLUS ACIDOPHILUS) [Concomitant]
  12. FISH OIL (FISH OIL) [Concomitant]
  13. FLAXSEED OIL (LINUM USITATISSIMUM SEED OIL) [Concomitant]
  14. CRANBERRY EXTRACT (ALL OTHER THERAPEUTIC PRODUCTS) [Concomitant]

REACTIONS (10)
  - CONSTIPATION [None]
  - DRY MOUTH [None]
  - EATING DISORDER [None]
  - INCREASED APPETITE [None]
  - PANIC ATTACK [None]
  - PHARYNGOLARYNGEAL PAIN [None]
  - RENAL PAIN [None]
  - SOMNOLENCE [None]
  - STRESS [None]
  - URINE OUTPUT DECREASED [None]
